FAERS Safety Report 23222115 (Version 1)
Quarter: 2023Q4

REPORT INFORMATION
  Report Type: Spontaneous
  Country: EG (occurrence: EG)
  Receive Date: 20231123
  Receipt Date: 20231123
  Transmission Date: 20240110
  Serious: Yes (Life-Threatening)
  Sender: FDA-Public Use
  Company Number: EG-HIKMA PHARMACEUTICALS-EG-H14001-23-67234

PATIENT
  Age: 38 Year
  Sex: Female
  Weight: 65 kg

DRUGS (1)
  1. PACLITAXEL [Suspect]
     Active Substance: PACLITAXEL
     Indication: Breast cancer
     Dosage: 280 MILLIGRAM, 3W
     Route: 041
     Dates: start: 20231015

REACTIONS (6)
  - Type I hypersensitivity [Unknown]
  - Erythema [Unknown]
  - Dyspnoea [Unknown]
  - Bronchospasm [Unknown]
  - Hot flush [Unknown]
  - Abdominal pain [Unknown]

NARRATIVE: CASE EVENT DATE: 20231015
